FAERS Safety Report 23930533 (Version 2)
Quarter: 2024Q2

REPORT INFORMATION
  Report Type: Spontaneous
  Country: JP (occurrence: JP)
  Receive Date: 20240602
  Receipt Date: 20240624
  Transmission Date: 20240716
  Serious: Yes (Death, Other)
  Sender: FDA-Public Use
  Company Number: JP-ONO-2024JP011269

PATIENT
  Age: 8 Decade
  Sex: Male
  Weight: 52.7 kg

DRUGS (9)
  1. OPDIVO [Suspect]
     Active Substance: NIVOLUMAB
     Indication: Oesophageal carcinoma
     Dosage: UNK
     Route: 041
  2. FLUOROURACIL [Suspect]
     Active Substance: FLUOROURACIL
     Indication: Oesophageal carcinoma
     Dosage: UNK
  3. CISPLATIN [Concomitant]
     Active Substance: CISPLATIN
     Indication: Oesophageal carcinoma
  4. PIPERACILLIN SODIUM\TAZOBACTAM SODIUM [Concomitant]
     Active Substance: PIPERACILLIN SODIUM\TAZOBACTAM SODIUM
     Indication: Infection prophylaxis
  5. AMLODIPINE [Concomitant]
     Active Substance: AMLODIPINE BESYLATE
     Route: 048
  6. CELIPROLOL HYDROCHLORIDE [Concomitant]
     Active Substance: CELIPROLOL HYDROCHLORIDE
     Route: 048
  7. METHYLCOBALAMIN [Concomitant]
     Active Substance: METHYLCOBALAMIN
     Route: 048
  8. LOXOPROFEN [Concomitant]
     Active Substance: LOXOPROFEN
     Route: 048
  9. REBAMIPIDE [Concomitant]
     Active Substance: REBAMIPIDE
     Route: 057

REACTIONS (2)
  - Febrile neutropenia [Fatal]
  - Diarrhoea [Unknown]
